FAERS Safety Report 16841860 (Version 1)
Quarter: 2019Q3

REPORT INFORMATION
  Report Type: Report from Study
  Country: CO (occurrence: CO)
  Receive Date: 20190923
  Receipt Date: 20190923
  Transmission Date: 20191005
  Serious: Yes (Life-Threatening, Other)
  Sender: FDA-Public Use
  Company Number: PHHY2019CO199795

PATIENT
  Sex: Female
  Weight: 65 kg

DRUGS (2)
  1. JADENU [Suspect]
     Active Substance: DEFERASIROX
     Indication: APLASTIC ANAEMIA
     Dosage: 720 MG, QD
     Route: 048
     Dates: end: 20190913
  2. JADENU [Suspect]
     Active Substance: DEFERASIROX
     Dosage: 360 MG, Q12H
     Route: 065

REACTIONS (11)
  - Gastritis [Unknown]
  - Renal pain [Unknown]
  - Abdominal pain upper [Unknown]
  - Inappropriate schedule of product administration [Unknown]
  - Nausea [Unknown]
  - Weight decreased [Unknown]
  - Blood creatinine increased [Unknown]
  - Nephrolithiasis [Unknown]
  - Decreased appetite [Unknown]
  - Chromaturia [Unknown]
  - Vomiting [Unknown]
